FAERS Safety Report 23700757 (Version 1)
Quarter: 2024Q2

REPORT INFORMATION
  Report Type: Spontaneous
  Country: GB (occurrence: GB)
  Receive Date: 20240403
  Receipt Date: 20240403
  Transmission Date: 20240716
  Serious: Yes (Death)
  Sender: FDA-Public Use
  Company Number: GB-MHRA-ADR 28614438

PATIENT
  Age: 87 Year
  Sex: Male

DRUGS (14)
  1. APIXABAN [Suspect]
     Active Substance: APIXABAN
     Indication: Product used for unknown indication
     Dosage: 5 MILLIGRAM, TWO TIMES A DAY
     Route: 048
  2. AMILORIDE [Concomitant]
     Active Substance: AMILORIDE
     Indication: Product used for unknown indication
     Dosage: UNK
     Route: 048
  3. ACETYLCYSTEINE [Concomitant]
     Active Substance: ACETYLCYSTEINE
     Indication: Product used for unknown indication
     Dosage: 600 MILLIGRAM, ONCE A DAY (IN THE MORNING)
     Route: 048
  4. BUMETANIDE [Concomitant]
     Active Substance: BUMETANIDE
     Indication: Product used for unknown indication
     Dosage: 1 MILLIGRAM, TWO TIMES A DAY (EACH MORNING AND ONE TO BE TAKEN AT LUNCHTIME)
     Route: 048
  5. BECLOMETHASONE\FORMOTEROL [Concomitant]
     Active Substance: BECLOMETHASONE\FORMOTEROL
     Indication: Product used for unknown indication
     Dosage: TWO PUFFS TO BE INHALED TWICE A DAY AND 2 EXTRAPUFFS WHEN WHEEZY OR SHORT OF BREATH
     Route: 055
  6. GLYCERIN [Concomitant]
     Active Substance: GLYCERIN
     Indication: Constipation
     Dosage: 4 GRAM, AS NECESSARY
     Route: 054
  7. HYLO FORTE [Concomitant]
     Indication: Product used for unknown indication
     Dosage: 1 GTT DROPS, ONCE A DAY ((4-6 TIMES DAILY))
     Route: 065
  8. OXYCODONE HYDROCHLORIDE [Concomitant]
     Active Substance: OXYCODONE HYDROCHLORIDE
     Indication: Product used for unknown indication
     Dosage: 5 MILLIGRAM, TWO TIMES A DAY
     Route: 048
  9. LORAZEPAM [Concomitant]
     Active Substance: LORAZEPAM
     Indication: Product used for unknown indication
     Dosage: 1 MILLIGRAM (HALF OR ONE TABLET AS REQUIRED SUBLINGUALLY - MAXIMUM 4MG A DAY)
     Route: 060
  10. OXYCODONE [Concomitant]
     Active Substance: OXYCODONE\OXYCODONE HYDROCHLORIDE
     Indication: Product used for unknown indication
     Dosage: 1.255 MILLIGRAM (5MG/5ML ORAL SOLUTION SUGAR FREE - 1.25MG EVERY FOUR HOURS AS REQUIRED FOR PAIN)
     Route: 048
  11. OMEPRAZOLE [Concomitant]
     Active Substance: OMEPRAZOLE
     Indication: Product used for unknown indication
     Dosage: 10 MILLIGRAM, ONCE A DAY
     Route: 048
  12. ALBUTEROL [Concomitant]
     Active Substance: ALBUTEROL
     Indication: Product used for unknown indication
     Dosage: 100 MICROGRAM, FOUR TIMES/DAY (ONE OR TWO PUFFS TO BE INHALED FOUR TIMES A DAY WHENREQUIRED -)
     Route: 055
  13. SENNA [Concomitant]
     Active Substance: SENNA LEAF\SENNOSIDES\SENNOSIDES A AND B
     Indication: Product used for unknown indication
     Dosage: 15 MILLIGRAM, AT BED TIME
     Route: 065
  14. ALBUTEROL [Concomitant]
     Active Substance: ALBUTEROL
     Indication: Product used for unknown indication
     Dosage: UNK UNK, FOUR TIMES/DAY (5MG/2.5ML, FOUR TIMES A DAY OR WHEN REQUIRED)
     Route: 048

REACTIONS (2)
  - Head injury [Fatal]
  - Fall [Fatal]
